FAERS Safety Report 8874411 (Version 1)
Quarter: 2012Q4

REPORT INFORMATION
  Report Type: 
  Country: JP (occurrence: JP)
  Receive Date: 20121031
  Receipt Date: 20121031
  Transmission Date: 20130627
  Serious: Yes (Other)
  Sender: FDA-Public Use
  Company Number: JP-009507513-1209JPN002576

PATIENT
  Age: 62 Year
  Sex: Male
  Weight: 163 kg

DRUGS (8)
  1. JANUVIA TABLETS 50MG [Suspect]
     Indication: DIABETES MELLITUS INADEQUATE CONTROL
     Dosage: 50 mg, qd
     Route: 048
     Dates: start: 20120725, end: 20120904
  2. BEPRICOR [Suspect]
     Indication: ATRIAL FIBRILLATION
     Dosage: 100 mg, bid
     Route: 048
     Dates: start: 20120725, end: 20120904
  3. AMARYL [Concomitant]
     Indication: DIABETES MELLITUS MANAGEMENT
     Dosage: 1.5 mg, qd
     Route: 048
  4. ARTIST [Concomitant]
     Indication: ATRIAL FIBRILLATION
     Dosage: 10 mg, qd
     Route: 048
  5. VASOLAN [Concomitant]
     Indication: ATRIAL FIBRILLATION
     Dosage: 160 mg, bid
     Route: 048
  6. PRAZAXA [Concomitant]
     Indication: ATRIAL FIBRILLATION
     Dosage: 220 mg, bid
     Route: 048
  7. LASIX (FUROSEMIDE) [Concomitant]
     Indication: CARDIAC FAILURE
     Dosage: 20 mg, qd
     Route: 048
  8. MEVALOTIN [Concomitant]
     Indication: HYPERLIPIDAEMIA
     Dosage: 5 mg, qd
     Route: 048

REACTIONS (1)
  - Drug-induced liver injury [Recovering/Resolving]
